FAERS Safety Report 4873659-2 (Version None)
Quarter: 2006Q1

REPORT INFORMATION
  Report Type: 
  Country: None (occurrence: None)
  Receive Date: 20060103
  Receipt Date: 20060103
  Transmission Date: 20060701
  Serious: Yes (Other)
  Sender: FDA-Public Use
  Company Number: None

PATIENT
  Age: 47 Year
  Sex: Female
  Weight: 64 kg

DRUGS (17)
  1. HYDRALAZINE 100 MG [Suspect]
     Indication: HYPERTENSION
     Dosage: 100 MG BID PO
     Route: 048
     Dates: start: 20050901, end: 20051011
  2. CELLCEPT/RAPAMUNE [Concomitant]
  3. PREDNISONE [Concomitant]
  4. LIPITOR [Concomitant]
  5. ATENOLOL [Concomitant]
  6. LASIX [Concomitant]
  7. ASPIRIN [Concomitant]
  8. ACYCLOVIR [Concomitant]
  9. PAXIL [Concomitant]
  10. GLIPIZIDE [Concomitant]
  11. K-DUR 10 [Concomitant]
  12. DEPO PROVER [Concomitant]
  13. NEXIUM [Concomitant]
  14. ALBUTEROL [Concomitant]
  15. M.V.I. [Concomitant]
  16. CITRACAL [Concomitant]
  17. VICODIN [Concomitant]

REACTIONS (1)
  - SYSTEMIC LUPUS ERYTHEMATOSUS [None]
